FAERS Safety Report 13064787 (Version 1)
Quarter: 2016Q4

REPORT INFORMATION
  Report Type: Spontaneous
  Country: US (occurrence: US)
  Receive Date: 20161223
  Receipt Date: 20161223
  Transmission Date: 20170207
  Serious: No
  Sender: FDA-Public Use
  Company Number: None

PATIENT
  Age: 72 Year
  Sex: Female

DRUGS (1)
  1. ETOPOSIDE 50MG MYLAN [Suspect]
     Active Substance: ETOPOSIDE
     Indication: OVARIAN CANCER
     Dosage: 50 MG ALTERN W ORALLY
     Route: 048
     Dates: start: 20160818, end: 20161201

REACTIONS (2)
  - Drug ineffective [None]
  - Laboratory test abnormal [None]

NARRATIVE: CASE EVENT DATE: 20161201
